FAERS Safety Report 10161930 (Version 2)
Quarter: 2014Q2

REPORT INFORMATION
  Report Type: Spontaneous
  Country: FR (occurrence: FR)
  Receive Date: 20140509
  Receipt Date: 20140618
  Transmission Date: 20141212
  Serious: No
  Sender: FDA-Public Use
  Company Number: FR-JNJFOC-20140502586

PATIENT
  Sex: 0

DRUGS (4)
  1. PREZISTA [Suspect]
     Indication: HIV INFECTION
     Route: 048
  2. RITONAVIR [Suspect]
     Indication: HIV INFECTION
     Route: 065
  3. RALTEGRAVIR [Suspect]
     Indication: HIV INFECTION
     Route: 065
  4. TRUVADA [Suspect]
     Indication: HIV INFECTION
     Route: 065

REACTIONS (1)
  - Virologic failure [Unknown]
